FAERS Safety Report 5317008-4 (Version None)
Quarter: 2007Q2

REPORT INFORMATION
  Report Type: 
  Country: None (occurrence: None)
  Receive Date: 20070504
  Receipt Date: 20070420
  Transmission Date: 20071010
  Serious: Yes (Other)
  Sender: FDA-Public Use
  Company Number: JP-ROCHE-488074

PATIENT
  Age: 9 Year
  Sex: Male
  Weight: 28 kg

DRUGS (2)
  1. TAMIFLU [Suspect]
     Dosage: DOSE FORM: DRY SYRUP.
     Route: 048
     Dates: start: 20070311, end: 20070311
  2. ACETAMINOPHEN [Concomitant]
     Dosage: TAKEN AS NEEDED. DRUG REPORTED AS ^UNKNOWN DRUG/ACETAMINOPHEN^
     Route: 048
     Dates: start: 20070311, end: 20070311

REACTIONS (1)
  - DELIRIUM [None]
